FAERS Safety Report 26030535 (Version 1)
Quarter: 2025Q4

REPORT INFORMATION
  Report Type: Spontaneous
  Country: IR (occurrence: IR)
  Receive Date: 20251112
  Receipt Date: 20251112
  Transmission Date: 20260117
  Serious: Yes (Death, Hospitalization, Other)
  Sender: SOMERSET THERAPEUTICS, LLC
  Company Number: IR-MIT-25-75-IR-2025-SOM-LIT-00084

PATIENT
  Age: 32 Year
  Sex: Female

DRUGS (1)
  1. METHOCARBAMOL [Suspect]
     Active Substance: METHOCARBAMOL
     Indication: Musculoskeletal pain
     Route: 030

REACTIONS (3)
  - Embolia cutis medicamentosa [Fatal]
  - Cardiogenic shock [Fatal]
  - Haemodynamic instability [Fatal]
